FAERS Safety Report 8717095 (Version 2)
Quarter: 2012Q4

REPORT INFORMATION
  Report Type: Report from Study
  Country: DE (occurrence: DE)
  Receive Date: 20120810
  Receipt Date: 20121012
  Transmission Date: 20130627
  Serious: Yes (Hospitalization)
  Sender: FDA-Public Use
  Company Number: DE-CELGENEUS-062-21880-12080022

PATIENT
  Age: 62 Year
  Sex: Female
  Weight: 85 kg

DRUGS (5)
  1. REVLIMID [Suspect]
     Indication: MULTIPLE MYELOMA
     Dosage: 10 Milligram
     Route: 048
     Dates: start: 20100802
  2. REVLIMID [Suspect]
     Dosage: 25 Milligram
     Route: 048
     Dates: start: 20100802
  3. REVLIMID [Suspect]
     Route: 048
     Dates: end: 20120724
  4. REVLIMID [Suspect]
     Route: 048
     Dates: start: 20120905
  5. CALCIUM [Concomitant]
     Indication: CALCIUM DEFICIENCY
     Route: 065

REACTIONS (1)
  - Plasma cell myeloma [Not Recovered/Not Resolved]
